FAERS Safety Report 10341183 (Version 1)
Quarter: 2014Q3

REPORT INFORMATION
  Report Type: Spontaneous
  Country: NO (occurrence: NO)
  Receive Date: 20140724
  Receipt Date: 20140724
  Transmission Date: 20150326
  Serious: Yes (Death)
  Sender: FDA-Public Use
  Company Number: PHHY2014NO087674

PATIENT
  Age: 27 Year
  Sex: Male

DRUGS (6)
  1. QUETIAPINE [Interacting]
     Active Substance: QUETIAPINE
  2. BUPRENORPHINE [Interacting]
     Active Substance: BUPRENORPHINE
  3. PREGABALIN. [Interacting]
     Active Substance: PREGABALIN
  4. NITRAZEPAM [Interacting]
     Active Substance: NITRAZEPAM
  5. ZOPICLONE [Interacting]
     Active Substance: ZOPICLONE
  6. CLONAZEPAM. [Suspect]
     Active Substance: CLONAZEPAM

REACTIONS (1)
  - Death [Fatal]

NARRATIVE: CASE EVENT DATE: 201405
